FAERS Safety Report 9009531 (Version 1)
Quarter: 2013Q1

REPORT INFORMATION
  Report Type: Report from Study
  Country: CA (occurrence: CA)
  Receive Date: 20130110
  Receipt Date: 20130110
  Transmission Date: 20140127
  Serious: Yes (Other)
  Sender: FDA-Public Use
  Company Number: CA-GLAXOSMITHKLINE-B0857624A

PATIENT
  Sex: 0

DRUGS (3)
  1. RYTHMOL [Suspect]
     Indication: ATRIAL FIBRILLATION
     Dosage: 450MG PER DAY
     Route: 065
  2. QUINIDINE SULFATE [Suspect]
     Dosage: 200MG PER DAY
     Route: 048
  3. PLACEBO [Suspect]
     Route: 065

REACTIONS (3)
  - Gastrointestinal disorder [Unknown]
  - Atrial flutter [Unknown]
  - Atrial fibrillation [None]
